FAERS Safety Report 6630134-2 (Version None)
Quarter: 2010Q1

REPORT INFORMATION
  Report Type: 
  Country: None (occurrence: None)
  Receive Date: 20100311
  Receipt Date: 20090814
  Transmission Date: 20100710
  Serious: Yes (Other)
  Sender: FDA-Public Use
  Company Number: US-BIOGENIDEC-2009BI019823

PATIENT
  Age: 30 Year
  Sex: Male

DRUGS (2)
  1. AVONEX [Suspect]
     Indication: MULTIPLE SCLEROSIS
     Route: 030
     Dates: start: 20030910, end: 20050801
  2. UNKNOWN ANTIDEPRESSANTS [Concomitant]
     Indication: DEPRESSION

REACTIONS (6)
  - CONTUSION [None]
  - DEPRESSION [None]
  - MULTIPLE SCLEROSIS [None]
  - SUICIDAL IDEATION [None]
  - SUICIDE ATTEMPT [None]
  - WEIGHT DECREASED [None]
